FAERS Safety Report 4870781-1 (Version None)
Quarter: 2006Q1

REPORT INFORMATION
  Report Type: 
  Country: None (occurrence: None)
  Receive Date: 20060103
  Receipt Date: 20051004
  Transmission Date: 20060701
  Serious: Yes (Death, Hospitalization)
  Sender: FDA-Public Use
  Company Number: US-MERCK-0510USA03977

PATIENT
  Age: 80 Year
  Sex: Male
  Weight: 91 kg

DRUGS (14)
  1. VIOXX [Suspect]
     Indication: ARTHRITIS
     Route: 048
     Dates: start: 20000405, end: 20031217
  2. ACETAMINOPHEN AND CODEINE [Concomitant]
     Route: 065
  3. ADVAIR DISKUS 100/50 [Concomitant]
     Route: 065
  4. AMBIEN [Concomitant]
     Route: 065
  5. ASPIRIN [Concomitant]
     Route: 065
  6. KLOR-CON [Concomitant]
     Route: 065
  7. LANOXIN [Concomitant]
     Route: 065
  8. MIRAPEX [Concomitant]
     Route: 065
  9. NEXIUM [Concomitant]
     Route: 065
  10. PREDNISONE [Concomitant]
     Route: 065
  11. PROTONIX [Concomitant]
     Route: 065
  12. SINEMET [Concomitant]
     Route: 065
  13. ACETAMINOPHEN AND PROPOXYPHENE NAPSYLATE [Concomitant]
     Route: 065
  14. NITROGLYCERIN [Concomitant]
     Route: 065

REACTIONS (59)
  - ANAEMIA [None]
  - ANGINA PECTORIS [None]
  - ANGINA UNSTABLE [None]
  - ANXIETY [None]
  - AORTIC VALVE INCOMPETENCE [None]
  - APNOEA [None]
  - ASBESTOSIS [None]
  - ATRIAL FIBRILLATION [None]
  - BACTERIAL INFECTION [None]
  - BLISTER [None]
  - BLOOD GLUCOSE INCREASED [None]
  - BRADYCARDIA [None]
  - BRONCHIAL HYPERACTIVITY [None]
  - BUNDLE BRANCH BLOCK LEFT [None]
  - CARDIAC FAILURE [None]
  - CARDIAC FAILURE CONGESTIVE [None]
  - CARDIOMEGALY [None]
  - CELLULITIS [None]
  - CERUMEN IMPACTION [None]
  - CHRONIC OBSTRUCTIVE PULMONARY DISEASE [None]
  - CORONARY ARTERY DISEASE [None]
  - CORONARY ARTERY STENOSIS [None]
  - COUGH [None]
  - DEPRESSION [None]
  - DILATATION ATRIAL [None]
  - DISLOCATION OF JOINT PROSTHESIS [None]
  - DYSPNOEA [None]
  - EOSINOPHILIA [None]
  - FALL [None]
  - GASTRITIS [None]
  - HAEMOGLOBIN DECREASED [None]
  - HAEMORRHAGE [None]
  - HIATUS HERNIA [None]
  - HYPERHIDROSIS [None]
  - HYPERLIPIDAEMIA [None]
  - HYPERTENSION [None]
  - INSOMNIA [None]
  - LUNG INFILTRATION [None]
  - MITRAL VALVE INCOMPETENCE [None]
  - MYOCARDIAL INFARCTION [None]
  - NON-CARDIAC CHEST PAIN [None]
  - OBSTRUCTIVE AIRWAYS DISORDER [None]
  - OEDEMA PERIPHERAL [None]
  - OXYGEN SATURATION DECREASED [None]
  - PLEURAL EFFUSION [None]
  - PULMONARY CALCIFICATION [None]
  - PULMONARY GRANULOMA [None]
  - PULMONARY HYPERTENSION [None]
  - RENAL FAILURE [None]
  - RHINITIS ALLERGIC [None]
  - RIGHT VENTRICULAR FAILURE [None]
  - ROTATOR CUFF SYNDROME [None]
  - SICK SINUS SYNDROME [None]
  - SKIN ULCER [None]
  - SPINAL FRACTURE [None]
  - THORACIC VERTEBRAL FRACTURE [None]
  - TRICUSPID VALVE INCOMPETENCE [None]
  - VENTRICULAR HYPERTROPHY [None]
  - VOMITING [None]
